FAERS Safety Report 8060182-X (Version None)
Quarter: 2012Q1

REPORT INFORMATION
  Report Type: 
  Country: None (occurrence: None)
  Receive Date: 20120120
  Receipt Date: 20120109
  Transmission Date: 20120608
  Serious: Yes (Other)
  Sender: FDA-Public Use
  Company Number: IT-ROCHE-1030443

PATIENT
  Age: 75 Year
  Sex: Female

DRUGS (1)
  1. ALTEPLASE [Suspect]
     Indication: ISCHAEMIC STROKE
     Route: 042

REACTIONS (5)
  - ISCHAEMIC STROKE [None]
  - EMBOLIC STROKE [None]
  - INTRACARDIAC THROMBUS [None]
  - THROMBOSIS [None]
  - NEUROLOGICAL DECOMPENSATION [None]
